FAERS Safety Report 8889884 (Version 1)
Quarter: 2012Q4

REPORT INFORMATION
  Report Type: 
  Country: IE (occurrence: IE)
  Receive Date: 20121107
  Receipt Date: 20121107
  Transmission Date: 20130627
  Serious: Yes (Death, Hospitalization)
  Sender: FDA-Public Use
  Company Number: IE-009507513-1210IRL011948

PATIENT

DRUGS (2)
  1. SIMVASTATIN [Suspect]
     Dosage: 40 mg, UNK
     Route: 048
  2. FUSIDIC ACID [Interacting]
     Dosage: UNK

REACTIONS (2)
  - Rhabdomyolysis [Fatal]
  - Drug interaction [Unknown]
